FAERS Safety Report 9786100 (Version 1)
Quarter: 2013Q4

REPORT INFORMATION
  Report Type: Spontaneous
  Country: US (occurrence: US)
  Receive Date: 20131227
  Receipt Date: 20131227
  Transmission Date: 20140711
  Serious: Yes (Other)
  Sender: FDA-Public Use
  Company Number: US-BAYER-2013-157829

PATIENT
  Age: 33 Year
  Sex: Female

DRUGS (1)
  1. MIRENA [Suspect]
     Indication: CONTRACEPTION
     Dosage: 20 MCG/24HR, CONT
     Dates: start: 2009

REACTIONS (7)
  - Device expulsion [Not Recovered/Not Resolved]
  - Device difficult to use [None]
  - Device breakage [Not Recovered/Not Resolved]
  - Complication of device removal [None]
  - Device issue [None]
  - Nausea [None]
  - Pain [None]
